FAERS Safety Report 8907219 (Version 2)
Quarter: 2012Q4

REPORT INFORMATION
  Report Type: 
  Country: US (occurrence: US)
  Receive Date: 20121114
  Receipt Date: 20121130
  Transmission Date: 20130627
  Serious: No
  Sender: FDA-Public Use
  Company Number: US-009507513-1211USA005669

PATIENT
  Age: 65 None
  Sex: Male

DRUGS (6)
  1. PEG-INTRON [Suspect]
     Indication: HEPATITIS C
     Dosage: UNK
     Dates: start: 20121028, end: 20121111
  2. RIBAVIRIN [Suspect]
     Indication: HEPATITIS C
     Dosage: UNK
     Dates: start: 19990101, end: 19991101
  3. RIBAVIRIN [Suspect]
     Dosage: UNK
     Dates: start: 20040101, end: 20041101
  4. RIBAVIRIN [Suspect]
     Dosage: UNK
     Dates: start: 20121028, end: 20121118
  5. INTRONA [Suspect]
     Indication: HEPATITIS C
     Dosage: UNK
     Dates: start: 19990101, end: 19990111
  6. PEGASYS [Suspect]
     Indication: HEPATITIS C
     Dosage: UNK
     Dates: start: 20040101, end: 20041101

REACTIONS (11)
  - Injection site reaction [Unknown]
  - Hepatitis C [Unknown]
  - Drug ineffective [Unknown]
  - Injection site reaction [Unknown]
  - Myalgia [Unknown]
  - Influenza like illness [Unknown]
  - Dizziness [Unknown]
  - Rash [Unknown]
  - Drug hypersensitivity [Unknown]
  - Injection site urticaria [Unknown]
  - Hepatitis C [Unknown]
